FAERS Safety Report 12380137 (Version 1)
Quarter: 2016Q2

REPORT INFORMATION
  Report Type: Spontaneous
  Country: US (occurrence: None)
  Receive Date: 20160517
  Receipt Date: 20160517
  Transmission Date: 20160815
  Serious: Yes (Other)
  Sender: FDA-Public Use
  Company Number: None

PATIENT
  Age: 64 Year
  Sex: Female
  Weight: 129.28 kg

DRUGS (27)
  1. CEPHALEXIN. [Concomitant]
     Active Substance: CEPHALEXIN
  2. SINGULAIR [Concomitant]
     Active Substance: MONTELUKAST SODIUM
  3. TRIAMCINOLONE ACERTONIDE [Concomitant]
  4. COUMADIN [Concomitant]
     Active Substance: WARFARIN SODIUM
  5. MULTIVITAMIN [Concomitant]
     Active Substance: VITAMINS
  6. TEMAZEPAM. [Concomitant]
     Active Substance: TEMAZEPAM
  7. FLUTICASONE [Concomitant]
     Active Substance: FLUTICASONE\FLUTICASONE PROPIONATE
  8. NYSTATIN. [Concomitant]
     Active Substance: NYSTATIN
  9. CALCIUM [Concomitant]
     Active Substance: CALCIUM
  10. VITAMIN D3 [Concomitant]
     Active Substance: CHOLECALCIFEROL
  11. MOVANTIK [Suspect]
     Active Substance: NALOXEGOL OXALATE
     Indication: CONSTIPATION
     Route: 048
     Dates: start: 20160412, end: 20160417
  12. ABILIFY [Concomitant]
     Active Substance: ARIPIPRAZOLE
  13. LEVOTHYROXINE. [Concomitant]
     Active Substance: LEVOTHYROXINE
  14. GABAPENTIN. [Concomitant]
     Active Substance: GABAPENTIN
  15. FLORKJEN 3 [Concomitant]
  16. LEXAPRO [Concomitant]
     Active Substance: ESCITALOPRAM OXALATE
  17. MAGNESIUM [Concomitant]
     Active Substance: MAGNESIUM
  18. VITAMIN B12 [Concomitant]
     Active Substance: CYANOCOBALAMIN
  19. METAMUCIL [Concomitant]
     Active Substance: PLANTAGO SEED
  20. SIMBICORT [Concomitant]
     Active Substance: BUDESONIDE\FORMOTEROL FUMARATE
  21. LACTULOSE. [Concomitant]
     Active Substance: LACTULOSE
  22. ITCH X OINTMENT [Concomitant]
  23. HYDEOCODONE [Concomitant]
  24. WELLBUTRIN SR [Concomitant]
     Active Substance: BUPROPION HYDROCHLORIDE
  25. LAMICTAL [Concomitant]
     Active Substance: LAMOTRIGINE
  26. TART CHERRY PILLS [Concomitant]
  27. ALLERGY EYE DROPS [Concomitant]
     Active Substance: NAPHAZOLINE HYDROCHLORIDE\PHENIRAMINE MALEATE

REACTIONS (2)
  - Depression [None]
  - Suicidal ideation [None]

NARRATIVE: CASE EVENT DATE: 20160415
